FAERS Safety Report 9712544 (Version 3)
Quarter: 2014Q2

REPORT INFORMATION
  Report Type: Spontaneous
  Country: US (occurrence: US)
  Receive Date: 20131126
  Receipt Date: 20140510
  Transmission Date: 20141212
  Serious: No
  Sender: FDA-Public Use
  Company Number: US-BRISTOL-MYERS SQUIBB COMPANY-18884742

PATIENT
  Age: 67 Year
  Sex: Male
  Weight: 151.92 kg

DRUGS (6)
  1. BYDUREON [Suspect]
     Indication: WEIGHT DECREASED
     Dosage: NO OF DOSES:4,LAST DOSE 0N OCT13
     Route: 058
     Dates: start: 20130401
  2. BYDUREON [Suspect]
     Indication: TYPE 2 DIABETES MELLITUS
     Dosage: NO OF DOSES:4,LAST DOSE 0N OCT13
     Route: 058
     Dates: start: 20130401
  3. GLIPIZIDE [Concomitant]
  4. FUROSEMIDE [Concomitant]
  5. SPIRONOLACTONE [Concomitant]
  6. WARFARIN [Concomitant]

REACTIONS (8)
  - Diarrhoea [Unknown]
  - Dry mouth [Unknown]
  - Injection site bruising [Unknown]
  - Dysgeusia [Not Recovered/Not Resolved]
  - Dyspepsia [Unknown]
  - Hot flush [Unknown]
  - Injection site rash [Unknown]
  - Pyrexia [Unknown]
